FAERS Safety Report 9237001 (Version 1)
Quarter: 2013Q2

REPORT INFORMATION
  Report Type: Report from Study
  Country: US (occurrence: US)
  Receive Date: 20130417
  Receipt Date: 20130417
  Transmission Date: 20140414
  Serious: Yes (Death, Hospitalization, Other)
  Sender: FDA-Public Use
  Company Number: PHEH2013US008364

PATIENT
  Sex: Female

DRUGS (21)
  1. GLEEVEC [Suspect]
     Indication: CHRONIC MYELOID LEUKAEMIA
     Dosage: 600 MG, DAILY
     Route: 048
     Dates: start: 20100126, end: 201303
  2. PRILOSEC [Concomitant]
     Dosage: 40 MG,DAILY
     Route: 048
  3. FOLVITE [Concomitant]
     Dosage: 1 MG,DAILY
     Route: 048
  4. DIFLUCAN [Concomitant]
     Dosage: 200 MG,DAILY
     Dates: start: 20120925
  5. ANTIVERT                           /00007101/ [Concomitant]
     Indication: VERTIGO
     Dosage: 25 MG, TID,HALF OR 1 TABLET 3 TIMES A DAY AS NEEDED
     Route: 048
     Dates: start: 20121022
  6. CYANOCOBALAMIN [Concomitant]
     Dosage: 500 UG, DAILY
     Route: 048
  7. LOMOTIL [Concomitant]
     Dosage: 1-2 TABLETS 4 TIMES A DAY
     Route: 048
     Dates: start: 20120919
  8. CALCIUM CARBONATE [Concomitant]
     Indication: DYSPEPSIA
     Dosage: 500 MG, BID,2 TABLETS BY MOUTH EVERY 2 HOURS AS NEEDED
     Route: 048
     Dates: start: 20120217
  9. PSYLLIUM [Concomitant]
     Dosage: 1 PACKET 3 TIMES A DAY
     Dates: start: 20110719
  10. DIAMOX                                  /CAN/ [Concomitant]
     Dosage: 250 MG, DAILY
     Dates: start: 20120906
  11. FLUOXETINE [Concomitant]
     Dosage: 10 MG,DAILY
     Route: 048
     Dates: start: 20121114
  12. ASPIRIN [Concomitant]
     Dosage: 81 MG,EVERY MONDAY,WEDNESDAY AND FRIDAY
     Route: 048
  13. ZIAC [Concomitant]
  14. LASIX [Concomitant]
     Indication: OEDEMA
     Dosage: 1 DF, DAILY AS NEEDED
     Route: 048
     Dates: start: 20120312
  15. LYRICA [Concomitant]
     Dosage: 100 MG, DAILY
     Route: 048
  16. PROZAC [Concomitant]
     Dosage: 1 DF, DAILY
     Route: 048
     Dates: start: 20121114
  17. ATARAX                                  /CAN/ [Concomitant]
     Indication: PRURITUS
     Dosage: 50 MG, EVERY 6 HRS AS NEEDED
     Route: 048
     Dates: start: 20121129
  18. ATARAX                                  /CAN/ [Concomitant]
     Indication: PRURITUS
  19. PERCOCET [Concomitant]
     Indication: PAIN
     Dosage: 10-325 MG PER TABLET (ONE OR 2 TABLETS EVERY 8 HRS)
     Dates: start: 20130304
  20. PLETAL [Concomitant]
     Dosage: 50 MG, BID,1 TABLET 2 TIMES A DAY
     Route: 048
     Dates: start: 20130219
  21. ACETAZOLAMIDE [Concomitant]
     Dosage: 250 MG, QD
     Dates: start: 20120906

REACTIONS (10)
  - Sudden cardiac death [Fatal]
  - Chronic myeloid leukaemia [Unknown]
  - Malignant neoplasm progression [Unknown]
  - Peripheral vascular disorder [Unknown]
  - Ischaemic ulcer [Unknown]
  - Blister [Unknown]
  - Vascular insufficiency [Unknown]
  - Chronic obstructive pulmonary disease [Unknown]
  - Back pain [Unknown]
  - Pain in extremity [Unknown]
